FAERS Safety Report 10706214 (Version 1)
Quarter: 2015Q1

REPORT INFORMATION
  Report Type: Spontaneous
  Country: JP (occurrence: JP)
  Receive Date: 20150113
  Receipt Date: 20150113
  Transmission Date: 20150721
  Serious: Yes (Hospitalization)
  Sender: FDA-Public Use
  Company Number: JP-RANBAXY-2014R1-91289

PATIENT
  Age: 25 Year
  Sex: Female

DRUGS (4)
  1. ASPIRIN. [Suspect]
     Active Substance: ASPIRIN
     Indication: PRODUCT USED FOR UNKNOWN INDICATION
     Dosage: UNK
     Route: 065
  2. IBUPROFEN. [Suspect]
     Active Substance: IBUPROFEN
     Indication: UPPER RESPIRATORY TRACT INFECTION
     Dosage: UNK
     Route: 065
  3. NORFLOXACIN [Concomitant]
     Active Substance: NORFLOXACIN
     Indication: UPPER RESPIRATORY TRACT INFECTION
     Dosage: UNK
     Route: 065
  4. THEOPHYLLINE [Concomitant]
     Active Substance: THEOPHYLLINE ANHYDROUS
     Indication: ASTHMA
     Dosage: UNK, PRN
     Route: 048

REACTIONS (1)
  - Asthma [Unknown]
